FAERS Safety Report 9705928 (Version 2)
Quarter: 2013Q4

REPORT INFORMATION
  Report Type: Spontaneous
  Country: RU (occurrence: RU)
  Receive Date: 20131122
  Receipt Date: 20131129
  Transmission Date: 20140711
  Serious: Yes (Hospitalization, Other)
  Sender: FDA-Public Use
  Company Number: RU-ASTRAZENECA-2013SE85829

PATIENT
  Age: 55 Year
  Sex: Male

DRUGS (3)
  1. CRESTOR [Suspect]
     Indication: DYSLIPIDAEMIA
     Route: 048
     Dates: start: 20131028, end: 20131106
  2. KARDIKET [Concomitant]
     Indication: CARDIOVASCULAR EVENT PROPHYLAXIS
     Route: 048
  3. CARVEDILOL [Concomitant]

REACTIONS (2)
  - Drug-induced liver injury [Unknown]
  - Non-alcoholic steatohepatitis [Unknown]
